FAERS Safety Report 12742265 (Version 1)
Quarter: 2016Q3

REPORT INFORMATION
  Report Type: Spontaneous
  Country: US (occurrence: US)
  Receive Date: 20160914
  Receipt Date: 20160914
  Transmission Date: 20161109
  Serious: Yes (Other)
  Sender: FDA-Public Use
  Company Number: US-JNJFOC-20160908012

PATIENT
  Age: 61 Year
  Sex: Female

DRUGS (1)
  1. INVOKANA [Suspect]
     Active Substance: CANAGLIFLOZIN
     Indication: TYPE 2 DIABETES MELLITUS
     Route: 048

REACTIONS (7)
  - Ocular hyperaemia [Unknown]
  - Heart rate increased [Unknown]
  - Dyskinesia [Unknown]
  - Blindness [Unknown]
  - Hypotension [Unknown]
  - Fatigue [Unknown]
  - Dry eye [Unknown]
